FAERS Safety Report 23673164 (Version 1)
Quarter: 2024Q1

REPORT INFORMATION
  Report Type: Spontaneous
  Country: US (occurrence: US)
  Receive Date: 20240326
  Receipt Date: 20240326
  Transmission Date: 20240409
  Serious: No
  Sender: FDA-Public Use
  Company Number: US-JNJFOC-20240327914

PATIENT
  Age: 47 Year
  Sex: Male

DRUGS (5)
  1. SUDAFED [Suspect]
     Active Substance: PSEUDOEPHEDRINE HYDROCHLORIDE
     Indication: Nasopharyngitis
     Route: 065
     Dates: start: 2023
  2. TYLENOL COLD + FLU [Concomitant]
     Indication: Nasopharyngitis
     Route: 065
     Dates: start: 2023, end: 2023
  3. BRIUMVI [Concomitant]
     Active Substance: UBLITUXIMAB-XIIY
     Indication: Multiple sclerosis
     Route: 042
     Dates: start: 20231027, end: 20231027
  4. BRIUMVI [Concomitant]
     Active Substance: UBLITUXIMAB-XIIY
     Dosage: REGIMEN #2
     Route: 042
     Dates: start: 2023, end: 2023
  5. ROSUVASTATIN [Concomitant]
     Active Substance: ROSUVASTATIN
     Indication: Blood cholesterol abnormal
     Route: 065

REACTIONS (2)
  - Peroneal nerve palsy [Unknown]
  - Hypokinesia [Unknown]

NARRATIVE: CASE EVENT DATE: 20230101
